FAERS Safety Report 7708742-7 (Version None)
Quarter: 2011Q3

REPORT INFORMATION
  Report Type: 
  Country: None (occurrence: None)
  Receive Date: 20110825
  Receipt Date: 20110825
  Transmission Date: 20111222
  Serious: Yes (Life-Threatening, Hospitalization)
  Sender: FDA-Public Use
  Company Number: None

PATIENT
  Age: 5 Year
  Sex: Female
  Weight: 19.2 kg

DRUGS (5)
  1. RILONACEPT [Suspect]
     Indication: JUVENILE ARTHRITIS
     Dosage: 38.72 MG
     Route: 058
     Dates: start: 20090826, end: 20100505
  2. INDOMETHACIN [Concomitant]
  3. NAPROXEN [Concomitant]
  4. ORAPRED [Concomitant]
  5. ZANTAC [Concomitant]

REACTIONS (17)
  - PULMONARY VALVE INCOMPETENCE [None]
  - GINGIVAL HYPERPLASIA [None]
  - JUVENILE ARTHRITIS [None]
  - PERICARDIAL EFFUSION [None]
  - HAEMOGLOBIN DECREASED [None]
  - PULMONARY VENO-OCCLUSIVE DISEASE [None]
  - RIGHT VENTRICULAR HYPERTROPHY [None]
  - RESPIRATORY TRACT INFECTION [None]
  - AVERSION [None]
  - HYPERTENSION [None]
  - CHEST DISCOMFORT [None]
  - PULMONARY HYPERTENSION [None]
  - CONDITION AGGRAVATED [None]
  - HIRSUTISM [None]
  - WEIGHT BEARING DIFFICULTY [None]
  - INTERSTITIAL LUNG DISEASE [None]
  - EJECTION FRACTION DECREASED [None]
